FAERS Safety Report 9742673 (Version 1)
Quarter: 2013Q4

REPORT INFORMATION
  Report Type: Spontaneous
  Country: US (occurrence: US)
  Receive Date: 20131210
  Receipt Date: 20131210
  Transmission Date: 20140711
  Serious: Yes (Hospitalization)
  Sender: FDA-Public Use
  Company Number: US-GILEAD-2009-0025314

PATIENT
  Sex: Male

DRUGS (15)
  1. LETAIRIS [Suspect]
     Indication: PULMONARY ARTERIAL HYPERTENSION
     Route: 048
  2. ASPIRIN [Concomitant]
  3. PLAVIX [Concomitant]
  4. LASIX [Concomitant]
  5. SPIRONOLACTONE [Concomitant]
  6. COREG [Concomitant]
  7. RAMIPRIL [Concomitant]
  8. KLOR-CON [Concomitant]
  9. GLYSET [Concomitant]
  10. NIASPAN [Concomitant]
  11. LIPITOR [Concomitant]
  12. ACTOS [Concomitant]
  13. PRANDIN [Concomitant]
  14. ALLOPURINOL [Concomitant]
  15. COLCHICINE [Concomitant]

REACTIONS (2)
  - Dyspnoea [Unknown]
  - Oedema [Unknown]
